FAERS Safety Report 9323475 (Version 2)
Quarter: 2013Q2

REPORT INFORMATION
  Report Type: Spontaneous
  Country: US (occurrence: US)
  Receive Date: 20130603
  Receipt Date: 20130626
  Transmission Date: 20140414
  Serious: Yes (Other)
  Sender: FDA-Public Use
  Company Number: US-PFIZER INC-2013167225

PATIENT
  Age: 55 Year
  Sex: Female
  Weight: 58.96 kg

DRUGS (4)
  1. LYRICA [Suspect]
     Indication: FIBROMYALGIA
     Dosage: 100 MG, 3X/DAY
     Dates: start: 2010, end: 201303
  2. AMITRIPTYLINE [Suspect]
     Indication: DEPRESSION
     Dosage: 25 MG, 1X/DAY
  3. AMITRIPTYLINE [Suspect]
     Dosage: 50 MG, 1X/DAY
  4. ATENOLOL/CHLORTHALIDONE [Concomitant]
     Indication: BLOOD PRESSURE ABNORMAL
     Dosage: 50 (ATENOLOL)/25 (CHLORTHALIDONE ) MG, 1X/DAY

REACTIONS (6)
  - Movement disorder [Unknown]
  - Activities of daily living impaired [Unknown]
  - Drug ineffective [Unknown]
  - Feeling abnormal [Unknown]
  - Depression [Unknown]
  - Somnolence [Unknown]
